FAERS Safety Report 4853637-X (Version None)
Quarter: 2005Q4

REPORT INFORMATION
  Report Type: 
  Country: None (occurrence: None)
  Receive Date: 20051214
  Receipt Date: 20051109
  Transmission Date: 20060501
  Serious: Yes (Death, Life-Threatening, Disabling)
  Sender: FDA-Public Use
  Company Number: 2005AP05815

PATIENT
  Age: 27241 Day
  Sex: Male
  Weight: 48 kg

DRUGS (6)
  1. IRESSA [Suspect]
     Indication: LUNG ADENOCARCINOMA
     Route: 048
     Dates: start: 20051101, end: 20051105
  2. TAKEPRON [Concomitant]
     Route: 048
     Dates: start: 20051027, end: 20051108
  3. NU-LOTAN [Concomitant]
     Route: 048
     Dates: start: 20051027, end: 20051108
  4. SILECE [Concomitant]
     Route: 048
     Dates: start: 20051028, end: 20051108
  5. DEPAS [Concomitant]
     Route: 048
     Dates: start: 20051028, end: 20051109
  6. NORVASC [Concomitant]
     Route: 048
     Dates: start: 20051030, end: 20051109

REACTIONS (6)
  - ATELECTASIS [None]
  - DEVICE RELATED INFECTION [None]
  - HYPOXIA [None]
  - INTERSTITIAL LUNG DISEASE [None]
  - PLEURAL EFFUSION [None]
  - PYREXIA [None]
